FAERS Safety Report 20255047 (Version 3)
Quarter: 2022Q2

REPORT INFORMATION
  Report Type: Report from Study
  Country: US (occurrence: US)
  Receive Date: 20211230
  Receipt Date: 20220401
  Transmission Date: 20220721
  Serious: Yes (Other)
  Sender: FDA-Public Use
  Company Number: US-NOVARTISPH-NVSC2021US293974

PATIENT
  Sex: Male

DRUGS (1)
  1. COSENTYX [Suspect]
     Active Substance: SECUKINUMAB
     Indication: Psoriatic arthropathy
     Dosage: 300 MG, QMO(BENEATH THE SKIN,VIA INJECTION)
     Route: 058

REACTIONS (7)
  - Neoplasm malignant [Unknown]
  - Polyneuropathy [Unknown]
  - Psoriatic arthropathy [Unknown]
  - Nerve compression [Unknown]
  - Tendon rupture [Unknown]
  - Radiation neuropathy [Unknown]
  - Ligament rupture [Unknown]
